FAERS Safety Report 7015714-7 (Version None)
Quarter: 2010Q3

REPORT INFORMATION
  Report Type: 
  Country: None (occurrence: None)
  Receive Date: 20100927
  Receipt Date: 20100524
  Transmission Date: 20110219
  Serious: No
  Sender: FDA-Public Use
  Company Number: US-ASTRAZENECA-2007UW06425

PATIENT
  Age: 804 Month
  Sex: Female
  Weight: 72.1 kg

DRUGS (2)
  1. ARIMIDEX [Suspect]
     Indication: BREAST CANCER FEMALE
     Route: 048
     Dates: start: 20050301, end: 20070101
  2. SYNTHROID [Concomitant]

REACTIONS (7)
  - ARTHRALGIA [None]
  - ARTHRITIS [None]
  - MUSCLE ATROPHY [None]
  - MUSCLE SPASMS [None]
  - MYALGIA [None]
  - NEUROPATHY PERIPHERAL [None]
  - WEIGHT DECREASED [None]
